FAERS Safety Report 5266995-1 (Version None)
Quarter: 2007Q1

REPORT INFORMATION
  Report Type: 
  Country: None (occurrence: None)
  Receive Date: 20070316
  Receipt Date: 20070312
  Transmission Date: 20070707
  Serious: Yes (Death)
  Sender: FDA-Public Use
  Company Number: IT-BAYER-200711386GDS

PATIENT
  Age: 67 Year
  Sex: Male
  Weight: 70 kg

DRUGS (3)
  1. SORAFENIB [Suspect]
     Indication: HEPATIC NEOPLASM MALIGNANT
     Dosage: TOTAL DAILY DOSE: 400 MG
     Route: 048
     Dates: start: 20070221, end: 20070228
  2. SOLDESAM [Concomitant]
     Indication: ASTHENIA
     Route: 048
     Dates: start: 20070110, end: 20070301
  3. UNIPRIL [Concomitant]
     Indication: HYPERTENSION
     Route: 048
     Dates: start: 20050701, end: 20070301

REACTIONS (1)
  - INTESTINAL OBSTRUCTION [None]
